FAERS Safety Report 8845882 (Version 1)
Quarter: 2012Q4

REPORT INFORMATION
  Report Type: 
  Country: US (occurrence: US)
  Receive Date: 20121017
  Receipt Date: 20121017
  Transmission Date: 20130627
  Serious: No
  Sender: FDA-Public Use
  Company Number: US-009507513-1210USA003380

PATIENT
  Sex: Female

DRUGS (2)
  1. MIRALAX [Suspect]
     Indication: PRODUCT USED FOR UNKNOWN INDICATION
     Dosage: UNK, qd
     Route: 048
     Dates: start: 201203
  2. BENEFIBER [Suspect]
     Indication: PRODUCT USED FOR UNKNOWN INDICATION
     Dosage: UNK
     Dates: start: 201203

REACTIONS (4)
  - Flatulence [Unknown]
  - Eructation [Unknown]
  - Overdose [Unknown]
  - Incorrect drug administration duration [Unknown]
